FAERS Safety Report 19489187 (Version 2)
Quarter: 2021Q3

REPORT INFORMATION
  Report Type: Other
  Country: DE (occurrence: DE)
  Receive Date: 20210703
  Receipt Date: 20210721
  Transmission Date: 20211014
  Serious: Yes (Other)
  Sender: FDA-Public Use
  Company Number: DE-MACLEODS PHARMA UK LTD-MAC2021031701

PATIENT

DRUGS (9)
  1. CORTISON [Concomitant]
     Active Substance: CORTISONE ACETATE
     Indication: POLYMYALGIA RHEUMATICA
     Dosage: UNK
     Route: 065
  2. PANTOPRAZOLE [Suspect]
     Active Substance: PANTOPRAZOLE
     Indication: GASTROOESOPHAGEAL REFLUX PROPHYLAXIS
     Dosage: UNK
     Route: 065
  3. PANTOPRAZOLE [Interacting]
     Active Substance: PANTOPRAZOLE
     Indication: PROPHYLAXIS
  4. VITAMIN B1?RATIOPHARM [Interacting]
     Active Substance: THIAMINE HYDROCHLORIDE
     Indication: MUSCLE DISCOMFORT
     Dosage: 200 MILLIGRAM, QD,HAS BEEN TAKEN FOR SOME TIME
     Route: 065
  5. PANTOPRAZOL NYC [Interacting]
     Active Substance: PANTOPRAZOLE SODIUM
     Indication: GASTROOESOPHAGEAL REFLUX PROPHYLAXIS
     Dosage: UNK
     Route: 065
  6. PANTOPRAZOL NYC [Interacting]
     Active Substance: PANTOPRAZOLE SODIUM
     Indication: PROPHYLAXIS
  7. PANTOPRAZOL?RATIOPHARM [Interacting]
     Active Substance: PANTOPRAZOLE SODIUM
     Indication: PROPHYLAXIS
  8. PANTOPRAZOL?RATIOPHARM [Interacting]
     Active Substance: PANTOPRAZOLE SODIUM
     Indication: GASTROOESOPHAGEAL REFLUX PROPHYLAXIS
     Dosage: UNK
     Route: 065
  9. VITAMIN B1?RATIOPHARM [Interacting]
     Active Substance: THIAMINE HYDROCHLORIDE
     Dosage: 50 MILLIGRAM, QD
     Route: 065

REACTIONS (8)
  - Drug interaction [Unknown]
  - Mobility decreased [Unknown]
  - Muscle atrophy [Unknown]
  - Tendon rupture [Unknown]
  - Vitamin B1 deficiency [Unknown]
  - Malabsorption [Unknown]
  - Arthropathy [Unknown]
  - Muscle strength abnormal [Unknown]

NARRATIVE: CASE EVENT DATE: 2018
